FAERS Safety Report 6078496-1 (Version None)
Quarter: 2009Q1

REPORT INFORMATION
  Report Type: 
  Country: None (occurrence: None)
  Receive Date: 20090211
  Receipt Date: 20090211
  Transmission Date: 20090719
  Serious: Yes (Hospitalization, Other)
  Sender: FDA-Public Use
  Company Number: None

PATIENT
  Age: 33 Year
  Sex: Female
  Weight: 43.0917 kg

DRUGS (4)
  1. AVELOX [Suspect]
     Indication: PNEUMONIA
     Dosage: 400 MG 1 DAILY PO
     Route: 048
     Dates: start: 20081205, end: 20081214
  2. AVELOX [Suspect]
     Indication: PNEUMONIA BACTERIAL
     Dosage: 400 MG 1 DAILY PO
     Route: 048
     Dates: start: 20081205, end: 20081214
  3. AVELOX [Suspect]
     Indication: PNEUMONIA
     Dosage: 400 MG 1 DAILY PO
     Route: 048
     Dates: start: 20081226, end: 20081230
  4. AVELOX [Suspect]
     Indication: PNEUMONIA BACTERIAL
     Dosage: 400 MG 1 DAILY PO
     Route: 048
     Dates: start: 20081226, end: 20081230

REACTIONS (31)
  - ABDOMINAL PAIN UPPER [None]
  - AFFECT LABILITY [None]
  - ANXIETY [None]
  - APHASIA [None]
  - ASTHENIA [None]
  - BONE PAIN [None]
  - CHEST DISCOMFORT [None]
  - CHILLS [None]
  - CONFUSIONAL STATE [None]
  - COUGH [None]
  - CREPITATIONS [None]
  - DEPRESSION [None]
  - DIZZINESS [None]
  - FALL [None]
  - FATIGUE [None]
  - FEELING HOT [None]
  - HEADACHE [None]
  - HYPOAESTHESIA [None]
  - INSOMNIA [None]
  - MALAISE [None]
  - MOOD SWINGS [None]
  - MOVEMENT DISORDER [None]
  - MUSCLE TWITCHING [None]
  - MUSCULAR WEAKNESS [None]
  - NIGHT SWEATS [None]
  - PAIN IN EXTREMITY [None]
  - PANIC ATTACK [None]
  - RASH GENERALISED [None]
  - THERAPEUTIC RESPONSE UNEXPECTED [None]
  - THINKING ABNORMAL [None]
  - WHEEZING [None]
